FAERS Safety Report 15018807 (Version 1)
Quarter: 2018Q2

REPORT INFORMATION
  Report Type: Report from Study
  Country: None (occurrence: CO)
  Receive Date: 20180616
  Receipt Date: 20180616
  Transmission Date: 20180711
  Serious: Yes (Hospitalization, Other)
  Sender: FDA-Public Use
  Company Number: CO-ABBVIE-18K-036-2390350-00

PATIENT
  Age: 45 Year
  Sex: Female

DRUGS (1)
  1. HUMIRA [Suspect]
     Active Substance: ADALIMUMAB
     Indication: ANKYLOSING SPONDYLITIS
     Route: 058
     Dates: start: 20140829

REACTIONS (5)
  - Procedural pain [Recovered/Resolved]
  - Menorrhagia [Recovered/Resolved]
  - Post procedural oedema [Recovered/Resolved]
  - Wound complication [Not Recovered/Not Resolved]
  - Post procedural inflammation [Recovered/Resolved]

NARRATIVE: CASE EVENT DATE: 2017
